FAERS Safety Report 23946271 (Version 1)
Quarter: 2024Q2

REPORT INFORMATION
  Report Type: Spontaneous
  Country: US (occurrence: US)
  Receive Date: 20240606
  Receipt Date: 20240606
  Transmission Date: 20240717
  Serious: No
  Sender: FDA-Public Use
  Company Number: US-COSETTE-CP2024US000112

PATIENT
  Age: 49 Year
  Sex: Female

DRUGS (1)
  1. VYLEESI [Suspect]
     Active Substance: BREMELANOTIDE ACETATE
     Indication: Libido decreased
     Dosage: 1.75 MG/0.3 ML
     Route: 058
     Dates: start: 20240108, end: 20240108

REACTIONS (1)
  - Vomiting [Recovered/Resolved]

NARRATIVE: CASE EVENT DATE: 20240108
